FAERS Safety Report 8609183 (Version 2)
Quarter: 2012Q4

REPORT INFORMATION
  Report Type: 
  Country: US (occurrence: US)
  Receive Date: 20120611
  Receipt Date: 20121005
  Transmission Date: 20130627
  Serious: No
  Sender: FDA-Public Use
  Company Number: US-ASTRAZENECA-2012SE20397

PATIENT
  Age: 59 Year
  Sex: Female

DRUGS (1)
  1. RHINOCORT AQUA [Suspect]
     Dosage: 32 MCG, UNKNOWN FREQUENCY
     Route: 045

REACTIONS (4)
  - Disorientation [Unknown]
  - Multiple allergies [Unknown]
  - Malaise [Unknown]
  - Drug dose omission [Unknown]
